FAERS Safety Report 10069074 (Version 2)
Quarter: 2014Q3

REPORT INFORMATION
  Report Type: Spontaneous
  Country: TR (occurrence: TR)
  Receive Date: 20140409
  Receipt Date: 20140722
  Transmission Date: 20150326
  Serious: Yes (Other)
  Sender: FDA-Public Use
  Company Number: PHHY2014TR040835

PATIENT
  Age: 73 Year
  Sex: Male

DRUGS (11)
  1. PROPOFOL. [Suspect]
     Active Substance: PROPOFOL
     Indication: ANAESTHESIA
     Dosage: 50 MG, UNK
  2. METHYLPREDNISOLONE [Suspect]
     Active Substance: METHYLPREDNISOLONE
     Indication: RASH
     Dosage: 125 MG, UNK
  3. FENTANYL. [Concomitant]
     Active Substance: FENTANYL
     Indication: ANAESTHESIA
     Dosage: 200 UG, UNK
  4. FENTANYL. [Concomitant]
     Active Substance: FENTANYL
     Route: 041
  5. SEVOFLURANE. [Concomitant]
     Active Substance: SEVOFLURANE
     Indication: ANAESTHESIA
  6. PROPOFOL. [Suspect]
     Active Substance: PROPOFOL
     Dosage: 2.5 MG/KG PER HOUR
  7. ROCURONIUM [Concomitant]
     Active Substance: ROCURONIUM BROMIDE
     Indication: ANAESTHESIA
     Dosage: 50 MG, UNK
  8. PROPOFOL. [Suspect]
     Active Substance: PROPOFOL
     Dosage: 2 MG/KG PER HOUR
  9. NOREPINEPHRINE [Suspect]
     Active Substance: NOREPINEPHRINE\NOREPINEPHRINE BITARTRATE
     Dosage: 0.02 UG/KG PER MIN
  10. EPINEPHRINE. [Suspect]
     Active Substance: EPINEPHRINE
     Dosage: 0.02 UG/KG PER MIN
  11. MIDAZOLAM [Concomitant]
     Active Substance: MIDAZOLAM\MIDAZOLAM HYDROCHLORIDE
     Indication: ANAESTHESIA
     Dosage: 4 MG, UNK

REACTIONS (12)
  - Blood triglycerides increased [Recovered/Resolved]
  - Base excess negative [Recovered/Resolved]
  - Propofol infusion syndrome [Recovered/Resolved]
  - Blood lactic acid increased [Recovered/Resolved]
  - Metabolic acidosis [Recovered/Resolved]
  - Hyperkalaemia [Recovered/Resolved]
  - Hepatic enzyme increased [Recovered/Resolved]
  - Blood creatine phosphokinase increased [Recovered/Resolved]
  - Oliguria [Recovered/Resolved]
  - Blood creatinine increased [Recovered/Resolved]
  - Blood urea increased [Recovered/Resolved]
  - Bradycardia [Recovered/Resolved]
